FAERS Safety Report 24111263 (Version 3)
Quarter: 2024Q3

REPORT INFORMATION
  Report Type: Spontaneous
  Country: US (occurrence: US)
  Receive Date: 20240718
  Receipt Date: 20240815
  Transmission Date: 20241016
  Serious: Yes (Hospitalization, Other)
  Sender: GILEAD
  Company Number: US-GILEAD-2024-0678683

PATIENT
  Sex: Male

DRUGS (1)
  1. YESCARTA [Suspect]
     Active Substance: AXICABTAGENE CILOLEUCEL
     Indication: Product used for unknown indication
     Dosage: UNK (DAY 0)
     Route: 042
     Dates: start: 20240530, end: 20240530

REACTIONS (22)
  - Cytomegalovirus infection reactivation [Unknown]
  - Polyomavirus viraemia [Unknown]
  - Pneumonia fungal [Unknown]
  - Pneumonia [Not Recovered/Not Resolved]
  - Adenovirus infection [Unknown]
  - Fall [Unknown]
  - Eating disorder [Not Recovered/Not Resolved]
  - Failure to thrive [Not Recovered/Not Resolved]
  - Fluid intake reduced [Not Recovered/Not Resolved]
  - Hypovolaemia [Unknown]
  - Asthenia [Unknown]
  - Dizziness [Unknown]
  - Hypotension [Not Recovered/Not Resolved]
  - Mental status changes [Not Recovered/Not Resolved]
  - Cognitive disorder [Not Recovered/Not Resolved]
  - Gait disturbance [Not Recovered/Not Resolved]
  - Tremor [Not Recovered/Not Resolved]
  - Confusional state [Not Recovered/Not Resolved]
  - Abdominal pain [Not Recovered/Not Resolved]
  - Cytokine release syndrome [Unknown]
  - Immune effector cell-associated neurotoxicity syndrome [Recovered/Resolved]
  - Encephalopathy [Unknown]

NARRATIVE: CASE EVENT DATE: 20240603
